FAERS Safety Report 21717090 (Version 6)
Quarter: 2023Q2

REPORT INFORMATION
  Report Type: Report from Study
  Country: US (occurrence: US)
  Receive Date: 20221212
  Receipt Date: 20230525
  Transmission Date: 20230722
  Serious: Yes (Other)
  Sender: FDA-Public Use
  Company Number: US-002147023-NVSC2022US285815

PATIENT
  Sex: Male

DRUGS (1)
  1. KESIMPTA [Suspect]
     Active Substance: OFATUMUMAB
     Indication: Multiple sclerosis
     Dosage: UNK
     Route: 058
     Dates: start: 20210715

REACTIONS (5)
  - Neuropathy peripheral [Unknown]
  - Back disorder [Not Recovered/Not Resolved]
  - Back pain [Recovering/Resolving]
  - Balance disorder [Not Recovered/Not Resolved]
  - Sleep disorder [Unknown]
